FAERS Safety Report 6316729-4 (Version None)
Quarter: 2009Q3

REPORT INFORMATION
  Report Type: 
  Country: None (occurrence: None)
  Receive Date: 20090820
  Receipt Date: 20090811
  Transmission Date: 20100115
  Serious: Yes (Hospitalization, Other)
  Sender: FDA-Public Use
  Company Number: US-ELI_LILLY_AND_COMPANY-US200908000297

PATIENT
  Age: 86 Year
  Sex: Female

DRUGS (1)
  1. FORTEO [Suspect]
     Dosage: 20 UG, UNK
     Dates: start: 20070801

REACTIONS (3)
  - FALL [None]
  - FEMORAL NECK FRACTURE [None]
  - WRIST FRACTURE [None]
